FAERS Safety Report 6706000-0 (Version None)
Quarter: 2010Q2

REPORT INFORMATION
  Report Type: 
  Country: None (occurrence: None)
  Receive Date: 20100429
  Receipt Date: 20100419
  Transmission Date: 20101027
  Serious: Yes (Other)
  Sender: FDA-Public Use
  Company Number: UTC-001032

PATIENT
  Age: 66 Year
  Sex: Female
  Weight: 86.2 kg

DRUGS (12)
  1. REMODULIN [Suspect]
     Indication: PULMONARY HYPERTENSION
     Dosage: 135.36 UG/KG(0.094 UG/KG, 1 IN 1 MIN INTRAVENOUS
     Route: 042
     Dates: start: 20070101
  2. REVATIO [Suspect]
     Indication: PULMONARY HYPERTENSION
     Dosage: 40 MG
     Dates: start: 20050701
  3. AMBRISENTAN (AMBRISENTAN) [Suspect]
     Dosage: 10 MG (10 MG, 1 IN 1D)
  4. POTASSIUM CHLORIDE [Suspect]
     Dosage: 40 MILLIEQUIVALENTS (20, MILLIEQUIVALENTS, 2 IN 1 D)
  5. LASIX [Concomitant]
  6. PREMARIN [Concomitant]
  7. NEXIUM [Concomitant]
  8. MAGNESIUM (MAGNESIUM) [Concomitant]
  9. CLARITIN [Concomitant]
  10. INSULIN (INSULIN) [Concomitant]
  11. OXYGEN (OXYGEN) [Concomitant]
  12. LATHYRUS [Concomitant]

REACTIONS (6)
  - ANXIETY [None]
  - ASCITES [None]
  - HYPERTENSION [None]
  - OEDEMA [None]
  - RIGHT VENTRICULAR FAILURE [None]
  - TACHYCARDIA [None]
